FAERS Safety Report 13321469 (Version 10)
Quarter: 2017Q4

REPORT INFORMATION
  Report Type: Spontaneous
  Country: US (occurrence: US)
  Receive Date: 20170309
  Receipt Date: 20171107
  Transmission Date: 20180320
  Serious: Yes (Congenital Anomaly, Other)
  Sender: FDA-Public Use
  Company Number: PHEH2017US006698

PATIENT
  Sex: Male

DRUGS (2)
  1. ZOFRAN ODT [Suspect]
     Active Substance: ONDANSETRON HYDROCHLORIDE
     Indication: FOETAL EXPOSURE DURING PREGNANCY
     Route: 064
  2. ONDANSETRON AUROBINDO [Suspect]
     Active Substance: ONDANSETRON HYDROCHLORIDE
     Indication: FOETAL EXPOSURE DURING PREGNANCY
     Dosage: MOTHER DOSE: 4 MG, TID
     Route: 064

REACTIONS (32)
  - Bicuspid aortic valve [Unknown]
  - Foetal exposure during pregnancy [Unknown]
  - Diarrhoea [Unknown]
  - Right ventricular hypertrophy [Unknown]
  - Left-to-right cardiac shunt [Unknown]
  - Pericardial effusion [Unknown]
  - Left ventricular dilatation [Unknown]
  - Congestive cardiomyopathy [Unknown]
  - Cardiomegaly [Unknown]
  - Tricuspid valve incompetence [Unknown]
  - Vomiting [Unknown]
  - Coarctation of the aorta [Unknown]
  - Heart disease congenital [Unknown]
  - Pulmonary oedema neonatal [Unknown]
  - Neonatal respiratory distress syndrome [Unknown]
  - Ventricular hypokinesia [Unknown]
  - Injury [Unknown]
  - Gastrooesophageal reflux disease [Unknown]
  - Aorta hypoplasia [Unknown]
  - Failure to thrive [Unknown]
  - Left ventricular hypertrophy [Unknown]
  - Upper respiratory tract infection [Unknown]
  - Pyrexia [Unknown]
  - Mitral valve incompetence [Unknown]
  - Left atrial dilatation [Unknown]
  - Left ventricular dysfunction [Unknown]
  - Sickle cell trait [Unknown]
  - Atrial septal defect [Unknown]
  - Cyanosis neonatal [Unknown]
  - Embolism venous [Unknown]
  - Jaundice neonatal [Unknown]
  - Poor feeding infant [Unknown]
